FAERS Safety Report 24806823 (Version 1)
Quarter: 2025Q1

REPORT INFORMATION
  Report Type: Spontaneous
  Country: IT (occurrence: IT)
  Receive Date: 20250104
  Receipt Date: 20250104
  Transmission Date: 20250409
  Serious: Yes (Hospitalization)
  Sender: AUROBINDO
  Company Number: IT-RBHC-20-24-ITA-RB-0000448

PATIENT
  Age: 46 Year
  Sex: Female

DRUGS (5)
  1. IBUPROFEN [Suspect]
     Active Substance: IBUPROFEN
     Indication: Pain
     Route: 065
  2. CLONAZEPAM CEVALLOS [Concomitant]
     Indication: Anxiety
     Route: 065
  3. CLONAZEPAM CEVALLOS [Concomitant]
     Indication: Depression
  4. ESCITALOPRAM [Concomitant]
     Active Substance: ESCITALOPRAM OXALATE
     Indication: Depression
     Route: 065
  5. ESCITALOPRAM [Concomitant]
     Active Substance: ESCITALOPRAM OXALATE
     Indication: Anxiety

REACTIONS (7)
  - Brachial plexus injury [Unknown]
  - Rotator cuff syndrome [Unknown]
  - Muscle tightness [Unknown]
  - Bursitis [Unknown]
  - Myalgia [Recovered/Resolved]
  - Back pain [Recovered/Resolved]
  - Drug ineffective [Recovered/Resolved]
